FAERS Safety Report 7558035-6 (Version None)
Quarter: 2011Q2

REPORT INFORMATION
  Report Type: 
  Country: None (occurrence: None)
  Receive Date: 20110620
  Receipt Date: 20110607
  Transmission Date: 20111010
  Serious: Yes (Hospitalization, Other)
  Sender: FDA-Public Use
  Company Number: PHHY2011GB49110

PATIENT
  Age: 61 Year
  Sex: Male

DRUGS (4)
  1. CLOPIDOGREL [Suspect]
  2. OMEPRAZOLE [Suspect]
  3. PENICILLIN V [Suspect]
  4. SIMVASTATIN [Suspect]

REACTIONS (24)
  - CEREBROVASCULAR ACCIDENT [None]
  - HEADACHE [None]
  - CONSTIPATION [None]
  - HEPATITIS E [None]
  - HEPATITIS [None]
  - CHROMATURIA [None]
  - RESTLESSNESS [None]
  - WEIGHT DECREASED [None]
  - GAIT DISTURBANCE [None]
  - SLEEP DISORDER [None]
  - VOMITING [None]
  - MUSCULAR WEAKNESS [None]
  - LIVER INJURY [None]
  - PALLOR [None]
  - PYREXIA [None]
  - LIVER FUNCTION TEST ABNORMAL [None]
  - EPIGASTRIC DISCOMFORT [None]
  - FAECES DISCOLOURED [None]
  - PRURITUS [None]
  - LIVEDO RETICULARIS [None]
  - COORDINATION ABNORMAL [None]
  - DECREASED APPETITE [None]
  - JAUNDICE [None]
  - DRY SKIN [None]
